FAERS Safety Report 6177778-2 (Version None)
Quarter: 2009Q2

REPORT INFORMATION
  Report Type: 
  Country: None (occurrence: None)
  Receive Date: 20090504
  Receipt Date: 20090430
  Transmission Date: 20091009
  Serious: No
  Sender: FDA-Public Use
  Company Number: US-B.I. PHARMACEUTICALS,INC./RIDGEFIELD-2009-BP-04809BP

PATIENT
  Sex: Female

DRUGS (10)
  1. SPIRIVA [Suspect]
     Indication: CHRONIC OBSTRUCTIVE PULMONARY DISEASE
     Dosage: 18MCG
     Route: 055
     Dates: start: 20050101
  2. LYRICA [Concomitant]
     Indication: ARTHRITIS
  3. PLAVIX [Concomitant]
     Indication: CEREBROVASCULAR ACCIDENT
     Dates: start: 20030101
  4. LONOTEN [Concomitant]
     Indication: HEART RATE IRREGULAR
     Dates: start: 20040101
  5. PROZAC [Concomitant]
     Indication: DEPRESSION
     Dates: start: 19840101
  6. LANOXIN [Concomitant]
  7. FLUOXETINE [Concomitant]
  8. ATENOLOL [Concomitant]
  9. SYNTHOID [Concomitant]
  10. PROAIR HFC AER [Concomitant]

REACTIONS (1)
  - DYSPNOEA [None]
